FAERS Safety Report 11597342 (Version 1)
Quarter: 2015Q4

REPORT INFORMATION
  Report Type: Spontaneous
  Country: US (occurrence: US)
  Receive Date: 20151006
  Receipt Date: 20151006
  Transmission Date: 20160304
  Serious: No
  Sender: FDA-Public Use
  Company Number: US-AMGEN-USASP2014092281

PATIENT
  Age: 73 Year
  Sex: Male

DRUGS (10)
  1. CRESTOR [Concomitant]
     Active Substance: ROSUVASTATIN CALCIUM
     Dosage: UNK
  2. LISINOPRIL. [Concomitant]
     Active Substance: LISINOPRIL
     Dosage: UNK
  3. XGEVA [Suspect]
     Active Substance: DENOSUMAB
     Indication: BONE DISORDER
     Dosage: UNK UNK, Q4WK
     Route: 065
     Dates: start: 20141024
  4. AMLODIPINE [Concomitant]
     Active Substance: AMLODIPINE BESYLATE
     Dosage: UNK
  5. DOCETAXEL. [Concomitant]
     Active Substance: DOCETAXEL
     Indication: PROSTATE CANCER
     Dosage: UNK
  6. VIAGRA [Concomitant]
     Active Substance: SILDENAFIL CITRATE
     Dosage: UNK UNK, AS NECESSARY
  7. CALCIUM + VITAMIN D                /01483701/ [Concomitant]
     Active Substance: CALCIUM\VITAMIN D
     Dosage: 1500 MG AND VITAMIN D 400 UNITS, UNK
  8. COREG [Concomitant]
     Active Substance: CARVEDILOL
     Dosage: UNK
  9. LEUPROLIDE                         /00726901/ [Concomitant]
     Dosage: UNK UNK, Q3MO
  10. ONDANSETRON [Concomitant]
     Active Substance: ONDANSETRON
     Dosage: UNK

REACTIONS (2)
  - Hypocalcaemia [Recovered/Resolved]
  - Blood alkaline phosphatase increased [Recovered/Resolved]
